FAERS Safety Report 8124778-9 (Version None)
Quarter: 2012Q1

REPORT INFORMATION
  Report Type: 
  Country: None (occurrence: None)
  Receive Date: 20120209
  Receipt Date: 20120206
  Transmission Date: 20120608
  Serious: Yes (Other)
  Sender: FDA-Public Use
  Company Number: US-PFIZER INC-2011260360

PATIENT
  Sex: Male
  Weight: 83 kg

DRUGS (6)
  1. CONTRAST MEDIA [Suspect]
     Dosage: UNKNOWN
  2. LYRICA [Suspect]
     Dosage: UNKNOWN
     Route: 048
  3. LYRICA [Suspect]
     Indication: ANXIETY
     Dosage: 75 MG, 3X/DAY
     Route: 048
     Dates: start: 20110925, end: 20111027
  4. SYNTHROID [Concomitant]
     Indication: HYPOTHYROIDISM
     Dosage: 100 UG, UNK
  5. ZYPREXA [Concomitant]
     Dosage: 5 MG, UNK
  6. XANAX [Concomitant]
     Indication: ANXIETY
     Dosage: 4 MG, UNK

REACTIONS (3)
  - PRURITUS [None]
  - RASH GENERALISED [None]
  - HYPERSENSITIVITY [None]
